FAERS Safety Report 5524868-0 (Version None)
Quarter: 2007Q4

REPORT INFORMATION
  Report Type: 
  Country: None (occurrence: None)
  Receive Date: 20071126
  Receipt Date: 20071122
  Transmission Date: 20080405
  Serious: Yes (Death)
  Sender: FDA-Public Use
  Company Number: PHBS2007BE19616

PATIENT
  Sex: Female

DRUGS (1)
  1. SANDOSTATIN [Suspect]
     Indication: IRRITABLE BOWEL SYNDROME
     Dosage: 0.1 MG/D
     Route: 058

REACTIONS (2)
  - DEATH [None]
  - ELECTROLYTE IMBALANCE [None]
